FAERS Safety Report 9374734 (Version 1)
Quarter: 2013Q2

REPORT INFORMATION
  Report Type: Spontaneous
  Country: CN (occurrence: CN)
  Receive Date: 20130628
  Receipt Date: 20130628
  Transmission Date: 20140414
  Serious: Yes (Hospitalization)
  Sender: FDA-Public Use
  Company Number: CN-JNJFOC-20130613175

PATIENT
  Age: 23 Year
  Sex: Male

DRUGS (1)
  1. IMODIUM [Suspect]
     Indication: DIARRHOEA
     Dosage: PRESCRIBED AT A DOSE OF 2 CAPSULES,3 TIMES A DAY , BUT HAD TAKEN 2 CAPSULES ONCE TOTALLING TO 4 MG
     Route: 048
     Dates: start: 20120728, end: 20120728

REACTIONS (7)
  - Laryngeal oedema [Recovering/Resolving]
  - Dysphagia [Recovering/Resolving]
  - Temperature intolerance [Recovering/Resolving]
  - Hypotension [Recovering/Resolving]
  - Hyperpyrexia [Recovering/Resolving]
  - Rash [Recovering/Resolving]
  - Pruritus [Recovering/Resolving]
